FAERS Safety Report 9216327 (Version 1)
Quarter: 2013Q2

REPORT INFORMATION
  Report Type: Spontaneous
  Country: MX (occurrence: MX)
  Receive Date: 20130408
  Receipt Date: 20130408
  Transmission Date: 20140414
  Serious: Yes (Other)
  Sender: FDA-Public Use
  Company Number: PHHY2013MX033566

PATIENT
  Age: 72 Year
  Sex: Female

DRUGS (1)
  1. EXFORGE [Suspect]
     Dosage: (VALSARTAN 160MG AND AMLODIPINE 05MG), UNK
     Route: 048
     Dates: start: 201001

REACTIONS (3)
  - Asphyxia [Recovered/Resolved]
  - Dyspnoea [Recovered/Resolved]
  - General physical health deterioration [Recovered/Resolved]
